FAERS Safety Report 24094100 (Version 4)
Quarter: 2024Q3

REPORT INFORMATION
  Report Type: Spontaneous
  Country: JP (occurrence: JP)
  Receive Date: 20240716
  Receipt Date: 20240911
  Transmission Date: 20241017
  Serious: Yes (Hospitalization, Other)
  Sender: AMGEN
  Company Number: JP-Vifor (International) Inc.-VIT-2024-06127

PATIENT
  Age: 61 Year
  Sex: Male

DRUGS (7)
  1. TAVNEOS [Suspect]
     Active Substance: AVACOPAN
     Indication: Microscopic polyangiitis
     Dosage: UNK
     Route: 048
     Dates: start: 20230424, end: 20230626
  2. PREDONINE [Concomitant]
     Active Substance: PREDNISOLONE
     Indication: Microscopic polyangiitis
     Dosage: 5 MILLIGRAM, QD
     Route: 065
  3. LANSOPRAZOLE [Concomitant]
     Active Substance: LANSOPRAZOLE
     Dosage: UNK
     Route: 048
  4. ALFACALCIDOL [Concomitant]
     Active Substance: ALFACALCIDOL
     Dosage: UNK
     Route: 048
  5. DAPAGLIFLOZIN [Concomitant]
     Active Substance: DAPAGLIFLOZIN
     Dosage: UNK
     Route: 048
  6. FEBUXOSTAT [Concomitant]
     Active Substance: FEBUXOSTAT
     Dosage: UNK
     Route: 048
  7. ENTRESTO [Concomitant]
     Active Substance: SACUBITRIL\VALSARTAN
     Dosage: UNK
     Route: 048

REACTIONS (1)
  - Pneumocystis jirovecii pneumonia [Recovered/Resolved]

NARRATIVE: CASE EVENT DATE: 20230626
